FAERS Safety Report 9322025 (Version 2)
Quarter: 2013Q3

REPORT INFORMATION
  Report Type: Spontaneous
  Country: IT (occurrence: None)
  Receive Date: 20130529
  Receipt Date: 20130716
  Transmission Date: 20140515
  Serious: Yes (Other)
  Sender: FDA-Public Use
  Company Number: VAL_02542_2013

PATIENT
  Age: 24 Year
  Sex: Female

DRUGS (1)
  1. PARLODEL [Suspect]
     Indication: PRODUCT USED FOR UNKNOWN INDICATION
     Route: 048
     Dates: start: 20130326, end: 20130328

REACTIONS (5)
  - Headache [None]
  - Nausea [None]
  - Vertigo [None]
  - Eyelid ptosis [None]
  - Refusal of treatment by patient [None]
